FAERS Safety Report 8859514 (Version 1)
Quarter: 2012Q4

REPORT INFORMATION
  Report Type: 
  Country: MX (occurrence: MX)
  Receive Date: 20121024
  Receipt Date: 20121024
  Transmission Date: 20130627
  Serious: No
  Sender: FDA-Public Use
  Company Number: MX-ELI_LILLY_AND_COMPANY-MX201210005125

PATIENT
  Age: 55 Year
  Sex: Female

DRUGS (1)
  1. CYMBALTA [Suspect]
     Indication: BACK PAIN
     Dosage: 60 mg, qd

REACTIONS (4)
  - Ocular icterus [Unknown]
  - Urinary hesitation [Unknown]
  - Diplopia [Unknown]
  - Anxiety [Unknown]
